FAERS Safety Report 15059101 (Version 1)
Quarter: 2018Q2

REPORT INFORMATION
  Report Type: Spontaneous
  Country: US (occurrence: US)
  Receive Date: 20180605
  Receipt Date: 20180605
  Transmission Date: 20180711
  Serious: Yes (Hospitalization)
  Sender: FDA-Public Use
  Company Number: None

PATIENT
  Sex: Female

DRUGS (1)
  1. ZOLADEX [Suspect]
     Active Substance: GOSERELIN ACETATE
     Indication: ADENOMYOSIS
     Dosage: ?          OTHER FREQUENCY:ONE DOSE Q 28 DAYS;?
     Route: 058
     Dates: start: 20180301

REACTIONS (1)
  - Nephrolithiasis [None]
